FAERS Safety Report 15841237 (Version 3)
Quarter: 2019Q2

REPORT INFORMATION
  Report Type: Spontaneous
  Country: US (occurrence: US)
  Receive Date: 20190118
  Receipt Date: 20190422
  Transmission Date: 20190711
  Serious: No
  Sender: FDA-Public Use
  Company Number: US-LEO PHARMA-316179

PATIENT
  Sex: Female

DRUGS (1)
  1. PICATO [Suspect]
     Active Substance: INGENOL MEBUTATE
     Indication: ACTINIC KERATOSIS
     Route: 061
     Dates: start: 20181228, end: 20181230

REACTIONS (7)
  - Periorbital pain [Recovered/Resolved]
  - Headache [Recovered/Resolved]
  - Application site burn [Recovered/Resolved]
  - Application site pain [Recovered/Resolved]
  - Application site discomfort [Recovered/Resolved]
  - Application site exfoliation [Recovered/Resolved]
  - Product administration error [Unknown]
